FAERS Safety Report 5806794-2 (Version None)
Quarter: 2008Q3

REPORT INFORMATION
  Report Type: 
  Country: None (occurrence: None)
  Receive Date: 20080711
  Receipt Date: 20080630
  Transmission Date: 20090109
  Serious: Yes (Hospitalization)
  Sender: FDA-Public Use
  Company Number: PHHY2008SE12415

PATIENT
  Sex: Male

DRUGS (4)
  1. EXELON [Suspect]
     Indication: DEMENTIA ALZHEIMER'S TYPE
     Dosage: 9.5 MG/24 HOURS
     Route: 062
     Dates: start: 20080101
  2. EXELON [Suspect]
     Dosage: 6 PATCHES
     Route: 062
     Dates: start: 20080625
  3. EXELON [Suspect]
     Dosage: 6 PATCHES
     Route: 062
     Dates: start: 20080626
  4. ANTIDEPRESSANTS [Concomitant]

REACTIONS (6)
  - FALL [None]
  - HYPERHIDROSIS [None]
  - OVERDOSE [None]
  - RENAL DISORDER [None]
  - URINE OUTPUT DECREASED [None]
  - VOMITING [None]
